FAERS Safety Report 5102111-4 (Version None)
Quarter: 2006Q3

REPORT INFORMATION
  Report Type: 
  Country: None (occurrence: None)
  Receive Date: 20060907
  Receipt Date: 20060825
  Transmission Date: 20061208
  Serious: Yes (Hospitalization, Other)
  Sender: FDA-Public Use
  Company Number: 23481-4

PATIENT
  Age: 65 Year
  Sex: Male
  Weight: 66 kg

DRUGS (1)
  1. DACARBAZINE [Suspect]
     Indication: METASTATIC MALIGNANT MELANOMA
     Dosage: 1730 MG IV
     Route: 042
     Dates: start: 20051010, end: 20051212

REACTIONS (14)
  - ABDOMINAL ABSCESS [None]
  - ABSCESS INTESTINAL [None]
  - COLONIC FISTULA [None]
  - COLONIC OBSTRUCTION [None]
  - DIVERTICULITIS [None]
  - ILEITIS [None]
  - ILEUS [None]
  - INTERSTITIAL LUNG DISEASE [None]
  - INTESTINAL FISTULA [None]
  - INTESTINAL PERFORATION [None]
  - NEPHROLITHIASIS [None]
  - RENAL CYST [None]
  - SMALL INTESTINAL OBSTRUCTION [None]
  - URETERIC OBSTRUCTION [None]
